FAERS Safety Report 7818709-6 (Version None)
Quarter: 2011Q4

REPORT INFORMATION
  Report Type: 
  Country: None (occurrence: None)
  Receive Date: 20111018
  Receipt Date: 20111006
  Transmission Date: 20120403
  Serious: No
  Sender: FDA-Public Use
  Company Number: US-BIOGENIDEC-2011BI007363

PATIENT
  Sex: Female

DRUGS (5)
  1. MS CONTIN [Concomitant]
     Indication: PAIN
  2. TYSABRI [Suspect]
     Indication: MULTIPLE SCLEROSIS
     Route: 042
     Dates: start: 20081006, end: 20090429
  3. TYSABRI [Suspect]
     Route: 042
     Dates: start: 20110404
  4. OXYCODONE HCL [Concomitant]
     Indication: PAIN
  5. SOLU-MEDROL [Concomitant]
     Indication: MULTIPLE SCLEROSIS
     Route: 042
     Dates: start: 20020101, end: 20110101

REACTIONS (18)
  - MULTIPLE SCLEROSIS [None]
  - THROAT TIGHTNESS [None]
  - URINARY TRACT INFECTION [None]
  - FATIGUE [None]
  - NAUSEA [None]
  - BAND SENSATION [None]
  - DIARRHOEA [None]
  - DIZZINESS [None]
  - HEADACHE [None]
  - MULTIPLE SCLEROSIS RELAPSE [None]
  - DYSURIA [None]
  - SENSATION OF FOREIGN BODY [None]
  - ASTHENIA [None]
  - WEIGHT DECREASED [None]
  - VOMITING [None]
  - FEELING HOT [None]
  - MIGRAINE [None]
  - MUSCLE TIGHTNESS [None]
